FAERS Safety Report 5892968-1 (Version None)
Quarter: 2008Q3

REPORT INFORMATION
  Report Type: 
  Country: None (occurrence: None)
  Receive Date: 20080922
  Receipt Date: 20080922
  Transmission Date: 20090109
  Serious: Yes (Other)
  Sender: FDA-Public Use
  Company Number: None

PATIENT
  Age: 50 Year
  Sex: Male
  Weight: 86.1834 kg

DRUGS (1)
  1. ZYRTEC [Suspect]
     Indication: ALLERGY TO PLANTS
     Dosage: 10 MG. -1 PILL-  DAILY PO
     Route: 048
     Dates: start: 20080405, end: 20080624

REACTIONS (8)
  - AURA [None]
  - DEJA VU [None]
  - DISORIENTATION [None]
  - DIZZINESS [None]
  - HEADACHE [None]
  - TEMPORAL LOBE EPILEPSY [None]
  - VIRAL INFECTION [None]
  - WEIGHT INCREASED [None]
